FAERS Safety Report 16070619 (Version 3)
Quarter: 2019Q2

REPORT INFORMATION
  Report Type: Spontaneous
  Country: US (occurrence: US)
  Receive Date: 20190314
  Receipt Date: 20190404
  Transmission Date: 20190711
  Serious: Yes (Hospitalization, Other)
  Sender: FDA-Public Use
  Company Number: US-UNITED THERAPEUTICS-UNT-2019-004393

PATIENT
  Age: 73 Year
  Sex: Female
  Weight: 63.95 kg

DRUGS (2)
  1. REMODULIN [Suspect]
     Active Substance: TREPROSTINIL
     Indication: PULMONARY ARTERIAL HYPERTENSION
     Dosage: 0.056 ?G/KG, CONTINUING
     Route: 041
     Dates: start: 20180308
  2. LETAIRIS [Concomitant]
     Active Substance: AMBRISENTAN
     Indication: PRODUCT USED FOR UNKNOWN INDICATION
     Route: 065

REACTIONS (4)
  - Dyspnoea [Unknown]
  - Ascites [Unknown]
  - Pulmonary arterial hypertension [Unknown]
  - Fluid retention [Unknown]

NARRATIVE: CASE EVENT DATE: 20190305
